FAERS Safety Report 13569355 (Version 3)
Quarter: 2017Q2

REPORT INFORMATION
  Report Type: Spontaneous
  Country: US (occurrence: US)
  Receive Date: 20170522
  Receipt Date: 20170619
  Transmission Date: 20170830
  Serious: Yes (Death, Hospitalization)
  Sender: FDA-Public Use
  Company Number: US-JNJFOC-20170520154

PATIENT
  Age: 53 Year
  Sex: Male
  Weight: 64.7 kg

DRUGS (10)
  1. FLUCONAZOLE. [Concomitant]
     Active Substance: FLUCONAZOLE
     Indication: COCCIDIOIDOMYCOSIS
     Dosage: DATE OF THERAPY: 02-2017 TO DEATH
     Route: 048
     Dates: start: 201702
  2. CEFEPIME [Concomitant]
     Active Substance: CEFEPIME HYDROCHLORIDE
     Indication: INFECTION
     Dosage: DATES: 28-APR TO 2-MAY
     Route: 042
  3. METOPROLOL. [Concomitant]
     Active Substance: METOPROLOL
     Indication: PRODUCT USED FOR UNKNOWN INDICATION
     Route: 048
  4. FLUCONAZOLE. [Concomitant]
     Active Substance: FLUCONAZOLE
     Indication: CRYPTOCOCCOSIS
  5. DEXAMETHASONE. [Concomitant]
     Active Substance: DEXAMETHASONE
     Indication: PLASMA CELL MYELOMA
     Dates: start: 20170510, end: 20170513
  6. ALBUTEROL. [Concomitant]
     Active Substance: ALBUTEROL
     Indication: ASTHMA
  7. DILAUDID [Concomitant]
     Active Substance: HYDROMORPHONE HYDROCHLORIDE
     Indication: PAIN
     Route: 048
  8. VALACYCLOVIR [Concomitant]
     Active Substance: VALACYCLOVIR HYDROCHLORIDE
     Indication: ANTIVIRAL PROPHYLAXIS
  9. DARZALEX [Suspect]
     Active Substance: DARATUMUMAB
     Indication: PLASMA CELL MYELOMA
     Route: 042
     Dates: start: 20170428
  10. RENVELA [Concomitant]
     Active Substance: SEVELAMER CARBONATE
     Indication: PRODUCT USED FOR UNKNOWN INDICATION
     Route: 048

REACTIONS (21)
  - Respiratory failure [Unknown]
  - Hypercalcaemia [Recovered/Resolved]
  - Dyspnoea [Unknown]
  - Abdominal pain [Unknown]
  - Pyrexia [Unknown]
  - Sepsis [Unknown]
  - Mental status changes [Recovered/Resolved]
  - Death [Fatal]
  - Pulseless electrical activity [Unknown]
  - Infusion related reaction [Unknown]
  - Chest pain [Unknown]
  - Bundle branch block right [Unknown]
  - Encephalopathy [Unknown]
  - Hypertension [Unknown]
  - Cytokine release syndrome [Unknown]
  - Arrhythmia [Unknown]
  - Tachycardia [Unknown]
  - Oxygen saturation abnormal [Unknown]
  - Lactic acidosis [Unknown]
  - Thrombocytopenia [Unknown]
  - Transaminases increased [Recovering/Resolving]

NARRATIVE: CASE EVENT DATE: 20170428
